FAERS Safety Report 13770867 (Version 2)
Quarter: 2017Q3

REPORT INFORMATION
  Report Type: Report from Study
  Country: None (occurrence: TW)
  Receive Date: 20170720
  Receipt Date: 20170722
  Transmission Date: 20171127
  Serious: Yes (Hospitalization, Other)
  Sender: FDA-Public Use
  Company Number: TW-ABBVIE-17K-153-2012174-00

PATIENT
  Age: 52 Year
  Sex: Male
  Weight: 98.8 kg

DRUGS (3)
  1. METHOTREXATE. [Concomitant]
     Active Substance: METHOTREXATE
     Indication: IMMUNODEFICIENCY
     Route: 048
     Dates: start: 20170630
  2. HUMIRA [Suspect]
     Active Substance: ADALIMUMAB
     Indication: PRODUCT USED FOR UNKNOWN INDICATION
     Route: 058
     Dates: start: 20170508, end: 20170522
  3. HUMIRA [Suspect]
     Active Substance: ADALIMUMAB
     Route: 058
     Dates: start: 20170630

REACTIONS (14)
  - Cerebral infarction [Unknown]
  - Cerebral ventricle dilatation [Unknown]
  - Vertebrobasilar insufficiency [Unknown]
  - Meningitis [Recovering/Resolving]
  - Cerebral atrophy [Unknown]
  - Cyst [Unknown]
  - Sinusitis [Unknown]
  - Gastrointestinal haemorrhage [Recovering/Resolving]
  - Tuberculosis [Recovering/Resolving]
  - Haemorrhoids [Unknown]
  - Cerebellar infarction [Unknown]
  - Carotid arteriosclerosis [Unknown]
  - Nephrolithiasis [Unknown]
  - Flatulence [Unknown]

NARRATIVE: CASE EVENT DATE: 20170518
